FAERS Safety Report 16865003 (Version 1)
Quarter: 2019Q3

REPORT INFORMATION
  Report Type: Spontaneous
  Country: US (occurrence: US)
  Receive Date: 20190929
  Receipt Date: 20190929
  Transmission Date: 20191005
  Serious: Yes (Life-Threatening, Hospitalization, Other)
  Sender: FDA-Public Use
  Company Number: US-AUROBINDO-AUR-APL-2019-061408

PATIENT
  Age: 38 Year
  Sex: Female

DRUGS (1)
  1. DIVALPROEX SODIUM EXTENDED-RELEASE TABLETS USP [Suspect]
     Active Substance: DIVALPROEX SODIUM
     Indication: PRODUCT USED FOR UNKNOWN INDICATION
     Dosage: 20 DOSAGE FORM, IN TOTAL
     Route: 048

REACTIONS (3)
  - Mental status changes [Unknown]
  - Intentional overdose [Recovering/Resolving]
  - Toxicity to various agents [Recovering/Resolving]
